FAERS Safety Report 7618735-6 (Version None)
Quarter: 2011Q3

REPORT INFORMATION
  Report Type: 
  Country: None (occurrence: None)
  Receive Date: 20110718
  Receipt Date: 20110706
  Transmission Date: 20111222
  Serious: Yes (Other)
  Sender: FDA-Public Use
  Company Number: PHHY2011US34353

PATIENT
  Sex: Female
  Weight: 49.887 kg

DRUGS (7)
  1. GILENYA [Suspect]
     Indication: RELAPSING-REMITTING MULTIPLE SCLEROSIS
     Dosage: 0.5 MG, QD
     Route: 048
     Dates: start: 20110124
  2. SENNA [Concomitant]
     Dosage: UNK UKN, UNK
     Route: 048
  3. VITAMIN D [Concomitant]
     Dosage: 2000 IU, DAILY
  4. LYRICA [Concomitant]
     Dosage: 200 MG, TID
  5. DITROPAN XL [Concomitant]
     Dosage: 10 MG, DAILY
  6. TIZANIDINE HYDROCHLORIDE [Concomitant]
     Dosage: 4 MG, FIVE TIME A DAY
  7. AMITRIPTYLINE HCL [Concomitant]
     Dosage: UNK UKN, PRN

REACTIONS (14)
  - SKIN LESION [None]
  - FATIGUE [None]
  - ASTHENIA [None]
  - DIZZINESS [None]
  - CONSTIPATION [None]
  - LOCALISED INFECTION [None]
  - SWELLING [None]
  - ERYTHEMA [None]
  - BLOOD PRESSURE DECREASED [None]
  - NOCTURIA [None]
  - BLISTER INFECTED [None]
  - MUSCULOSKELETAL STIFFNESS [None]
  - CELLULITIS [None]
  - GAIT DISTURBANCE [None]
